FAERS Safety Report 5603385-3 (Version None)
Quarter: 2008Q1

REPORT INFORMATION
  Report Type: 
  Country: None (occurrence: None)
  Receive Date: 20080122
  Receipt Date: 20070523
  Transmission Date: 20080703
  Serious: No
  Sender: FDA-Public Use
  Company Number: PHBS2007US08782

PATIENT
  Age: 70 Year
  Sex: Male

DRUGS (1)
  1. BACLOFEN [Suspect]
     Indication: MUSCLE SPASTICITY
     Dosage: 150 UG/DAY INTRATHECAL, 215 UG/DAY; INTRATHECAL
     Route: 037

REACTIONS (3)
  - CATHETER SITE RELATED REACTION [None]
  - GRANULOMA [None]
  - MUSCLE SPASTICITY [None]
